FAERS Safety Report 6234514-9 (Version None)
Quarter: 2009Q2

REPORT INFORMATION
  Report Type: 
  Country: None (occurrence: None)
  Receive Date: 20090618
  Receipt Date: 20090106
  Transmission Date: 20091009
  Serious: No
  Sender: FDA-Public Use
  Company Number: US-BRISTOL-MYERS SQUIBB COMPANY-14461230

PATIENT
  Age: 69 Year
  Sex: Female

DRUGS (1)
  1. SINEMET [Suspect]
     Indication: PARKINSON'S DISEASE
     Route: 065

REACTIONS (5)
  - ASTHENIA [None]
  - DECREASED ACTIVITY [None]
  - DRUG INEFFECTIVE [None]
  - FOOD INTERACTION [None]
  - MOVEMENT DISORDER [None]
